FAERS Safety Report 6196935-2 (Version None)
Quarter: 2009Q2

REPORT INFORMATION
  Report Type: 
  Country: None (occurrence: None)
  Receive Date: 20090520
  Receipt Date: 20090513
  Transmission Date: 20091009
  Serious: Yes (Hospitalization)
  Sender: FDA-Public Use
  Company Number: DE-AMGEN-UK343116

PATIENT
  Sex: Male
  Weight: 119 kg

DRUGS (4)
  1. VECTIBIX [Suspect]
     Indication: COLORECTAL CANCER
     Route: 065
     Dates: start: 20090415, end: 20090415
  2. NAVOBAN [Concomitant]
     Route: 042
     Dates: start: 20090415, end: 20090415
  3. FENISTIL [Concomitant]
     Route: 042
     Dates: start: 20090415, end: 20090415
  4. TAGAMET [Concomitant]
     Route: 042
     Dates: start: 20090415, end: 20090415

REACTIONS (3)
  - DYSPNOEA [None]
  - HYPERSENSITIVITY [None]
  - OXYGEN SATURATION DECREASED [None]
